FAERS Safety Report 6223871-5 (Version None)
Quarter: 2009Q2

REPORT INFORMATION
  Report Type: 
  Country: None (occurrence: None)
  Receive Date: 20090611
  Receipt Date: 20090302
  Transmission Date: 20091009
  Serious: No
  Sender: FDA-Public Use
  Company Number: US-ABBOTT-09P-163-0560443-00

PATIENT
  Sex: Female
  Weight: 68.554 kg

DRUGS (6)
  1. HUMIRA [Suspect]
     Indication: CROHN'S DISEASE
     Route: 058
     Dates: start: 20081001
  2. PENTASA [Concomitant]
     Indication: CROHN'S DISEASE
     Route: 048
  3. METOPROLOL SUCCINATE [Concomitant]
     Indication: HYPERTENSION
     Route: 048
  4. MELOXICAM [Concomitant]
     Indication: ARTHRITIS
     Route: 048
  5. FIBERCON [Concomitant]
     Indication: CONSTIPATION
     Dosage: UNKNOWN
     Route: 048
  6. MOVE FREE [Concomitant]
     Indication: ARTHRITIS
     Dosage: UNKNOWN
     Route: 048

REACTIONS (2)
  - INJECTION SITE PAIN [None]
  - INJECTION SITE URTICARIA [None]
